FAERS Safety Report 9806016 (Version 1)
Quarter: 2014Q1

REPORT INFORMATION
  Report Type: Spontaneous
  Country: US (occurrence: None)
  Receive Date: 20140108
  Receipt Date: 20140108
  Transmission Date: 20141002
  Serious: Yes (Life-Threatening)
  Sender: FDA-Public Use
  Company Number: None

PATIENT
  Age: 10 Year
  Sex: Male
  Weight: 62.1 kg

DRUGS (1)
  1. LAMOTRIGINE [Suspect]
     Indication: EPILEPSY
     Route: 048
     Dates: start: 20131016

REACTIONS (1)
  - Hypersensitivity [None]
